FAERS Safety Report 9264186 (Version 1)
Quarter: 2013Q2

REPORT INFORMATION
  Report Type: Spontaneous
  Country: GR (occurrence: GR)
  Receive Date: 20130430
  Receipt Date: 20130430
  Transmission Date: 20140414
  Serious: Yes (Other)
  Sender: FDA-Public Use
  Company Number: GR-PFIZER INC-2013128124

PATIENT
  Sex: Male

DRUGS (6)
  1. XALATAN [Suspect]
     Dosage: UNK
  2. NORVASC [Concomitant]
     Dosage: UNK
  3. COVERSYL [Concomitant]
     Dosage: UNK
  4. LASIX [Concomitant]
     Dosage: UNK
  5. LEXOTANIL [Concomitant]
     Dosage: UNK
  6. LESCOL [Concomitant]

REACTIONS (2)
  - Cataract [Unknown]
  - Intraocular pressure increased [Unknown]
